FAERS Safety Report 24580482 (Version 2)
Quarter: 2024Q4

REPORT INFORMATION
  Report Type: Spontaneous
  Country: US (occurrence: US)
  Receive Date: 20241105
  Receipt Date: 20241112
  Transmission Date: 20250114
  Serious: Yes (Death, Hospitalization)
  Sender: PFIZER
  Company Number: US-PFIZER INC-202400292001

PATIENT
  Age: 48 Year
  Sex: Male

DRUGS (2)
  1. GEMCITABINE HYDROCHLORIDE [Suspect]
     Active Substance: GEMCITABINE HYDROCHLORIDE
     Indication: Adenocarcinoma pancreas
     Dosage: 3 CYCLES
  2. ABRAXANE [Suspect]
     Active Substance: PACLITAXEL
     Indication: Adenocarcinoma pancreas
     Dosage: 3 CYCLES

REACTIONS (3)
  - Post procedural infection [Fatal]
  - Acute cholecystitis necrotic [Fatal]
  - Actinomycosis [Fatal]
